FAERS Safety Report 17394832 (Version 2)
Quarter: 2020Q2

REPORT INFORMATION
  Report Type: Spontaneous
  Country: DE (occurrence: DE)
  Receive Date: 20200210
  Receipt Date: 20200624
  Transmission Date: 20200713
  Serious: Yes (Life-Threatening, Hospitalization)
  Sender: FDA-Public Use
  Company Number: DE-AUROBINDO-AUR-APL-2020-006022

PATIENT
  Age: 61 Year
  Sex: Female

DRUGS (8)
  1. MST [MORPHINE SULFATE] [Interacting]
     Active Substance: MORPHINE SULFATE
     Indication: PAIN
     Dosage: 20 MILLIGRAM, ONCE A DAY, (20 MG BEFORE GOING TO BED)
     Route: 065
  2. URBASON [Concomitant]
     Active Substance: METHYLPREDNISOLONE
     Indication: ANTI-INFECTIVE THERAPY
     Dosage: UNK
     Route: 016
  3. TEGRETAL [Concomitant]
     Active Substance: CARBAMAZEPINE
     Indication: PRODUCT USED FOR UNKNOWN INDICATION
     Dosage: UNK
     Route: 016
  4. GABAPENTIN FILM-COATED TABLET [Suspect]
     Active Substance: GABAPENTIN
     Indication: PRODUCT USED FOR UNKNOWN INDICATION
     Dosage: 1 DOSAGE FORM (1 TABLET, SINGLE)
     Route: 065
  5. MST [MORPHINE SULFATE] [Interacting]
     Active Substance: MORPHINE SULFATE
     Dosage: 120 MILLIGRAM, ONCE A DAY (60 MG, BID)
     Route: 065
  6. MST [MORPHINE SULFATE] [Interacting]
     Active Substance: MORPHINE SULFATE
     Indication: PAIN
     Dosage: UNK
     Route: 065
     Dates: start: 1995
  7. MST [MORPHINE SULFATE] [Interacting]
     Active Substance: MORPHINE SULFATE
     Dosage: 30 MILLIGRAM, ONCE A DAY, 1 TABLET IN THE AFTERNOON
     Route: 065
  8. MST [MORPHINE SULFATE] [Interacting]
     Active Substance: MORPHINE SULFATE
     Dosage: UNK

REACTIONS (8)
  - Body temperature decreased [Unknown]
  - Drug interaction [Unknown]
  - Adverse event [Not Recovered/Not Resolved]
  - Metabolic disorder [Unknown]
  - Product substitution issue [Recovered/Resolved]
  - Intensive care [Recovered/Resolved]
  - Memory impairment [Unknown]
  - Blood potassium decreased [Unknown]

NARRATIVE: CASE EVENT DATE: 1999
